FAERS Safety Report 8421246-1 (Version None)
Quarter: 2012Q2

REPORT INFORMATION
  Report Type: 
  Country: None (occurrence: None)
  Receive Date: 20120608
  Receipt Date: 20120530
  Transmission Date: 20120825
  Serious: Yes (Other)
  Sender: FDA-Public Use
  Company Number: MX-JNJFOC-20120600518

PATIENT
  Sex: Female

DRUGS (1)
  1. ORTHO EVRA [Suspect]
     Indication: CONTRACEPTION
     Dosage: 6 MG NORELGESTROMIN AND 0.6 MG ETHINYL ESTRADIOL
     Route: 062
     Dates: start: 20091001

REACTIONS (1)
  - HAEMORRHAGIC OVARIAN CYST [None]
